FAERS Safety Report 8788898 (Version 3)
Quarter: 2012Q4

REPORT INFORMATION
  Report Type: 
  Country: US (occurrence: US)
  Receive Date: 20120915
  Receipt Date: 20121022
  Transmission Date: 20130627
  Serious: Yes (Other)
  Sender: FDA-Public Use
  Company Number: US-009507513-1209USA005153

PATIENT
  Age: 40 None
  Sex: Male
  Weight: 74.98 kg

DRUGS (3)
  1. PEGINTRON [Suspect]
     Indication: HEPATITIS C
     Dosage: UNK
     Dates: start: 20120907, end: 20120907
  2. PEGINTRON [Suspect]
     Dosage: UNK
     Dates: start: 20120919
  3. REBETOL [Suspect]
     Dosage: UNK
     Dates: start: 20120919

REACTIONS (9)
  - Renal failure acute [Not Recovered/Not Resolved]
  - Chest pain [Recovered/Resolved]
  - Nausea [Recovering/Resolving]
  - Myalgia [Recovered/Resolved]
  - Treatment noncompliance [Unknown]
  - Abdominal pain upper [Unknown]
  - Pain [Not Recovered/Not Resolved]
  - Gastritis [Unknown]
  - Incorrect storage of drug [Unknown]
